FAERS Safety Report 4894715-9 (Version None)
Quarter: 2006Q1

REPORT INFORMATION
  Report Type: 
  Country: None (occurrence: None)
  Receive Date: 20060127
  Receipt Date: 20060127
  Transmission Date: 20060701
  Serious: Yes (Hospitalization)
  Sender: FDA-Public Use
  Company Number: None

PATIENT
  Age: 36 Year
  Sex: Female
  Weight: 56.6996 kg

DRUGS (3)
  1. KETEK [Suspect]
     Indication: BRONCHITIS
     Dosage: 800MG   ONCE    PO
     Route: 048
     Dates: start: 20051211, end: 20051211
  2. ORAL CONTRACEPTIVES [Concomitant]
  3. CITALOPRAM HYDROBROMIDE [Concomitant]

REACTIONS (5)
  - BLINDNESS TRANSIENT [None]
  - ORTHOSTATIC HYPOTENSION [None]
  - PYREXIA [None]
  - TACHYCARDIA [None]
  - VISUAL FIELD DEFECT [None]
